FAERS Safety Report 15449571 (Version 1)
Quarter: 2018Q4

REPORT INFORMATION
  Report Type: Spontaneous
  Country: RU (occurrence: RU)
  Receive Date: 20181001
  Receipt Date: 20181001
  Transmission Date: 20190204
  Serious: Yes (Death, Other)
  Sender: FDA-Public Use
  Company Number: RU-BAYER-2018-176160

PATIENT
  Age: 72 Year
  Sex: Male

DRUGS (3)
  1. PAZOPANIB [Concomitant]
     Active Substance: PAZOPANIB
  2. SORAFENIB (RAF KINASE INHIBITOR) [Suspect]
     Active Substance: SORAFENIB
     Indication: CHOLANGIOCARCINOMA
  3. KETROL [Concomitant]
     Dosage: 30 MG, BID

REACTIONS (9)
  - Off label use [None]
  - Metastases to lung [None]
  - Peripheral swelling [None]
  - Pain in extremity [None]
  - Cholangiocarcinoma [None]
  - Gamma-glutamyltransferase increased [None]
  - Palmar-plantar erythrodysaesthesia syndrome [None]
  - Product use in unapproved indication [None]
  - Erythema [None]
